FAERS Safety Report 23867904 (Version 1)
Quarter: 2024Q2

REPORT INFORMATION
  Report Type: Spontaneous
  Country: GB (occurrence: GB)
  Receive Date: 20240517
  Receipt Date: 20240517
  Transmission Date: 20240715
  Serious: Yes (Other)
  Sender: FDA-Public Use
  Company Number: None

PATIENT
  Age: 52 Year
  Sex: Female
  Weight: 99 kg

DRUGS (7)
  1. DULOXETINE HYDROCHLORIDE [Suspect]
     Active Substance: DULOXETINE HYDROCHLORIDE
     Indication: Product used for unknown indication
     Dosage: 90 MG, DAILY
     Route: 065
     Dates: start: 20240220, end: 20240510
  2. BETAMETHASONE VALERATE\FUSIDIC ACID [Concomitant]
     Active Substance: BETAMETHASONE VALERATE\FUSIDIC ACID
     Indication: Product used for unknown indication
     Dosage: 60 G, DAILY
     Dates: start: 20240402
  3. CLOBETASOL [Concomitant]
     Active Substance: CLOBETASOL
     Indication: Product used for unknown indication
     Dosage: 100G APPLY THINLY ONCE/TWICE A DAY AS DIRECTED BY DERMATOLOGY OR 200G APPLY ONCE DAILY FOR 2 WEEKS
     Route: 061
     Dates: start: 20240412
  4. CETRABEN [LIGHT LIQUID PARAFFIN;WHITE SOFT PA [Concomitant]
     Indication: Product used for unknown indication
     Dosage: 900 G
     Route: 061
     Dates: start: 20240412
  5. EUMOVATE [Concomitant]
     Active Substance: CLOBETASONE BUTYRATE
     Indication: Product used for unknown indication
     Dosage: 30 G, UNK
     Route: 061
     Dates: start: 20240322, end: 20240504
  6. FEXOFENADINE [Concomitant]
     Active Substance: FEXOFENADINE HYDROCHLORIDE
     Indication: Product used for unknown indication
     Dates: start: 20240322, end: 20240506
  7. FLUCLOXACILLIN [Concomitant]
     Active Substance: FLUCLOXACILLIN
     Indication: Product used for unknown indication
     Dosage: 1 DOSAGE FORM
     Dates: start: 20240322, end: 20240420

REACTIONS (1)
  - Rash [Recovering/Resolving]
